FAERS Safety Report 10534069 (Version 1)
Quarter: 2014Q4

REPORT INFORMATION
  Report Type: Spontaneous
  Country: US (occurrence: None)
  Receive Date: 20141020
  Receipt Date: 20141020
  Transmission Date: 20150529
  Serious: Yes (Other)
  Sender: FDA-Public Use
  Company Number: CIO14070173

PATIENT

DRUGS (2)
  1. METAMUCIL [Suspect]
     Active Substance: PLANTAGO SEED
     Route: 048
  2. ZITHROMAX [Suspect]
     Active Substance: AZITHROMYCIN DIHYDRATE
     Indication: OTITIS MEDIA
     Route: 048

REACTIONS (1)
  - Anaphylactic reaction [None]
